FAERS Safety Report 18747641 (Version 1)
Quarter: 2021Q1

REPORT INFORMATION
  Report Type: Spontaneous
  Country: US (occurrence: US)
  Receive Date: 20210115
  Receipt Date: 20210115
  Transmission Date: 20210419
  Serious: No
  Sender: FDA-Public Use
  Company Number: US-PFIZER INC-2019234277

PATIENT
  Age: 62 Year
  Sex: Female
  Weight: 85 kg

DRUGS (13)
  1. LYRICA [Suspect]
     Active Substance: PREGABALIN
     Indication: PAIN
     Dosage: 150 MG, 3X/DAY
     Route: 048
  2. LYRICA [Suspect]
     Active Substance: PREGABALIN
     Indication: LUMBAR RADICULOPATHY
     Dosage: 100 MG, 3X/DAY
     Route: 048
  3. ALBUTEROL [SALBUTAMOL] [Concomitant]
     Active Substance: ALBUTEROL
     Indication: SINUSITIS
     Dosage: 90 UG, UNK
  4. LYRICA [Suspect]
     Active Substance: PREGABALIN
     Indication: MYELOPATHY
  5. LYRICA [Suspect]
     Active Substance: PREGABALIN
     Indication: ARTHRALGIA
  6. LYRICA [Suspect]
     Active Substance: PREGABALIN
     Indication: SCIATICA
  7. LYRICA [Suspect]
     Active Substance: PREGABALIN
     Indication: BACK PAIN
  8. LYRICA [Suspect]
     Active Substance: PREGABALIN
     Indication: SPINAL OSTEOARTHRITIS
  9. LYRICA [Suspect]
     Active Substance: PREGABALIN
     Indication: NEURALGIA
  10. LYRICA [Suspect]
     Active Substance: PREGABALIN
     Indication: ARTHRALGIA
  11. LYRICA [Suspect]
     Active Substance: PREGABALIN
     Indication: NEURALGIA
  12. CHANTIX [Concomitant]
     Active Substance: VARENICLINE TARTRATE
     Indication: SMOKING CESSATION THERAPY
     Dosage: 1 MG
  13. CLONAZEPAM. [Concomitant]
     Active Substance: CLONAZEPAM
     Dosage: 0.5 MG, AS NEEDED (DAILY, AS NEEDED)

REACTIONS (1)
  - Diarrhoea [Unknown]
